FAERS Safety Report 17809412 (Version 4)
Quarter: 2020Q3

REPORT INFORMATION
  Report Type: Spontaneous
  Country: DK (occurrence: DK)
  Receive Date: 20200521
  Receipt Date: 20200810
  Transmission Date: 20201102
  Serious: Yes (Other)
  Sender: FDA-Public Use
  Company Number: DK-SUN PHARMACEUTICAL INDUSTRIES LTD-2020RR-247832

PATIENT
  Age: 30 Year
  Sex: Female

DRUGS (4)
  1. TINZAPARINE [Suspect]
     Active Substance: TINZAPARIN
     Route: 065
  2. TINZAPARINE [Suspect]
     Active Substance: TINZAPARIN
     Indication: THROMBOSIS
     Dosage: 10.000 IU INTERNATIONAL UNIT(S), DAILY
     Route: 065
  3. GANIRELIX [Suspect]
     Active Substance: GANIRELIX
     Indication: IN VITRO FERTILISATION
     Dosage: 0.25 MILLIGRAM, DAILY
     Route: 065
  4. GANIRELIX [Suspect]
     Active Substance: GANIRELIX
     Indication: IN VITRO FERTILISATION
     Dosage: 0.25 MILLIGRAM, DAILY
     Route: 065

REACTIONS (5)
  - Thrombosis [Unknown]
  - Ovarian hyperstimulation syndrome [Unknown]
  - Exposure during pregnancy [Not Recovered/Not Resolved]
  - Pleural effusion [Unknown]
  - Infarction [Unknown]
